FAERS Safety Report 4917069-8 (Version None)
Quarter: 2006Q1

REPORT INFORMATION
  Report Type: 
  Country: None (occurrence: None)
  Receive Date: 20060214
  Receipt Date: 20060202
  Transmission Date: 20060701
  Serious: Yes (Death)
  Sender: FDA-Public Use
  Company Number: 2006-CZ-00603

PATIENT
  Sex: Female

DRUGS (10)
  1. PREDNISOLONE TAB [Suspect]
  2. BESTPIRIN 75 MG (ACETYLSALICYLIC ACID) [Suspect]
     Dosage: 75 MG
  3. TIOTROPIUM BROMIDE (18 MICROGRAM) [Suspect]
     Indication: CHRONIC OBSTRUCTIVE PULMONARY DISEASE
     Dosage: 18 MCG, RESPIRATORY
     Route: 055
  4. SALBUTAMOL (2.5 MILLIGRAM) [Suspect]
     Dosage: NEBULES
  5. FLUTICASONE PROPIONATE [Suspect]
     Dosage: RESPIRATORY (INHALATION)
     Route: 055
  6. CLOTRIMAZOLE [Suspect]
  7. LEKOVIT CA [Suspect]
  8. GAVISCON/01764701/ [Suspect]
  9. PANTOPRAZOLE [Suspect]
  10. RAMIPRIL [Suspect]

REACTIONS (3)
  - CARDIAC FAILURE [None]
  - PANCREATITIS ACUTE [None]
  - PERITONITIS [None]
